FAERS Safety Report 21968243 (Version 2)
Quarter: 2023Q1

REPORT INFORMATION
  Report Type: Spontaneous
  Country: DE (occurrence: DE)
  Receive Date: 20230208
  Receipt Date: 20230220
  Transmission Date: 20230417
  Serious: Yes (Death)
  Sender: FDA-Public Use
  Company Number: DE-TEVA-2023-DE-2852701

PATIENT
  Age: 12 Year

DRUGS (6)
  1. ARIPIPRAZOLE [Interacting]
     Active Substance: ARIPIPRAZOLE
     Indication: Emotional disorder
     Route: 065
  2. ARIPIPRAZOLE [Interacting]
     Active Substance: ARIPIPRAZOLE
     Indication: Behaviour disorder
  3. ARIPIPRAZOLE [Interacting]
     Active Substance: ARIPIPRAZOLE
     Indication: Intellectual disability
  4. GUANFACINE [Interacting]
     Active Substance: GUANFACINE
     Indication: Emotional disorder
     Route: 065
  5. GUANFACINE [Interacting]
     Active Substance: GUANFACINE
     Indication: Behaviour disorder
  6. GUANFACINE [Interacting]
     Active Substance: GUANFACINE
     Indication: Intellectual disability

REACTIONS (3)
  - Electrocardiogram QT prolonged [Fatal]
  - Drug interaction [Fatal]
  - Off label use [Fatal]
